FAERS Safety Report 17651399 (Version 1)
Quarter: 2020Q2

REPORT INFORMATION
  Report Type: Spontaneous
  Country: US (occurrence: US)
  Receive Date: 20200409
  Receipt Date: 20200409
  Transmission Date: 20200713
  Serious: Yes (Hospitalization)
  Sender: FDA-Public Use
  Company Number: None

PATIENT
  Age: 71 Year
  Sex: Male
  Weight: 94.5 kg

DRUGS (1)
  1. ENOXAPARIN (ENOXAPARIN 30MG/0.3ML INJ) [Suspect]
     Active Substance: ENOXAPARIN SODIUM
     Indication: THROMBOSIS PROPHYLAXIS
     Route: 058
     Dates: start: 20150528, end: 20150608

REACTIONS (4)
  - Haematochezia [None]
  - Abdominal pain [None]
  - Epistaxis [None]
  - Sneezing [None]

NARRATIVE: CASE EVENT DATE: 20150604
